FAERS Safety Report 17252008 (Version 2)
Quarter: 2020Q1

REPORT INFORMATION
  Report Type: Spontaneous
  Country: FR (occurrence: FR)
  Receive Date: 20200109
  Receipt Date: 20200205
  Transmission Date: 20200409
  Serious: Yes (Congenital Anomaly)
  Sender: FDA-Public Use
  Company Number: FR-MYLANLABS-2020M1001712

PATIENT
  Sex: Female
  Weight: 2.1 kg

DRUGS (3)
  1. SPIRIVA [Concomitant]
     Active Substance: TIOTROPIUM BROMIDE MONOHYDRATE
     Indication: PRODUCT USED FOR UNKNOWN INDICATION
     Dosage: UNK
     Route: 064
  2. TRAMADOL. [Suspect]
     Active Substance: TRAMADOL
     Indication: PAIN
     Dosage: 150MG LE MATIN ET 200MG LE SOIR
     Route: 064
     Dates: start: 20181202, end: 20190818
  3. SERETIDE [Concomitant]
     Active Substance: FLUTICASONE PROPIONATE\SALMETEROL XINAFOATE
     Indication: ASTHMA
     Dosage: UNK
     Route: 064
     Dates: end: 20190818

REACTIONS (6)
  - Withdrawal syndrome [Recovered/Resolved]
  - Perineal fistula [Not Recovered/Not Resolved]
  - Foetal exposure during pregnancy [Recovered/Resolved]
  - Foetal growth restriction [Recovering/Resolving]
  - Low birth weight baby [Recovering/Resolving]
  - Foetal malnutrition [Recovered/Resolved]

NARRATIVE: CASE EVENT DATE: 2019
